FAERS Safety Report 20474535 (Version 1)
Quarter: 2022Q1

REPORT INFORMATION
  Report Type: Report from Study
  Country: CA (occurrence: CA)
  Receive Date: 20220215
  Receipt Date: 20220215
  Transmission Date: 20220423
  Serious: Yes (Other)
  Sender: FDA-Public Use
  Company Number: CA-MYLANLABS-2021M1075616

PATIENT
  Age: 39 Year
  Sex: Female

DRUGS (1)
  1. HULIO [Suspect]
     Active Substance: ADALIMUMAB-FKJP
     Indication: Hidradenitis
     Dosage: UNK, BIWEEKLY

REACTIONS (7)
  - Haematochezia [Unknown]
  - Arthralgia [Recovered/Resolved]
  - Diarrhoea [Unknown]
  - Faeces discoloured [Unknown]
  - Abdominal pain [Unknown]
  - Injection site erythema [Recovered/Resolved]
  - Injection site oedema [Recovered/Resolved]
